FAERS Safety Report 6317392-9 (Version None)
Quarter: 2009Q3

REPORT INFORMATION
  Report Type: 
  Country: None (occurrence: None)
  Receive Date: 20090820
  Receipt Date: 20090820
  Transmission Date: 20100115
  Serious: Yes (Life-Threatening)
  Sender: FDA-Public Use
  Company Number: None

PATIENT

DRUGS (1)
  1. NAVANE [Suspect]

REACTIONS (9)
  - APATHY [None]
  - BLOOD TRIGLYCERIDES INCREASED [None]
  - MENTAL DISORDER [None]
  - OVERWEIGHT [None]
  - PERSONALITY CHANGE [None]
  - POVERTY [None]
  - SELF ESTEEM DECREASED [None]
  - SKIN DISORDER [None]
  - SLUGGISHNESS [None]
